FAERS Safety Report 17243610 (Version 8)
Quarter: 2020Q3

REPORT INFORMATION
  Report Type: Report from Study
  Country: US (occurrence: US)
  Receive Date: 20200107
  Receipt Date: 20200828
  Transmission Date: 20201102
  Serious: Yes (Hospitalization, Other)
  Sender: FDA-Public Use
  Company Number: US-GLAXOSMITHKLINE-US2019TSO215043

PATIENT
  Age: 78 Year
  Sex: Female

DRUGS (6)
  1. NIRAPARIB [Suspect]
     Active Substance: NIRAPARIB
     Dosage: 200 MG, QD (AT NIGHT BEDTIME)
     Route: 048
  2. NIRAPARIB [Suspect]
     Active Substance: NIRAPARIB
     Dosage: 200 MG, QD
     Route: 048
  3. NIRAPARIB [Suspect]
     Active Substance: NIRAPARIB
     Dosage: 100 MG, QD
     Route: 048
     Dates: start: 20191115
  4. NIRAPARIB [Suspect]
     Active Substance: NIRAPARIB
     Dosage: 100 MG, QD
     Route: 048
  5. NIRAPARIB [Suspect]
     Active Substance: NIRAPARIB
     Dosage: 200 MG, QD
     Route: 048
  6. NIRAPARIB [Suspect]
     Active Substance: NIRAPARIB
     Indication: OVARIAN CANCER
     Dosage: 100 MG, QD
     Route: 048
     Dates: start: 20191106

REACTIONS (19)
  - Tooth infection [Unknown]
  - White matter lesion [Unknown]
  - Sleep disorder [Not Recovered/Not Resolved]
  - Hallucination [Recovered/Resolved]
  - Fall [Unknown]
  - Hypertension [Unknown]
  - Skin disorder [Unknown]
  - Chest pain [Unknown]
  - Hospice care [Unknown]
  - Hospitalisation [Unknown]
  - Cardiac disorder [Unknown]
  - Seborrhoea [Unknown]
  - Illness [Unknown]
  - Hypersomnia [Unknown]
  - Pruritus [Not Recovered/Not Resolved]
  - Product dose omission issue [Unknown]
  - Feeling abnormal [Unknown]
  - Pain in extremity [Unknown]
  - Underdose [Unknown]

NARRATIVE: CASE EVENT DATE: 201911
